FAERS Safety Report 24819523 (Version 1)
Quarter: 2025Q1

REPORT INFORMATION
  Report Type: Spontaneous
  Country: AO (occurrence: AO)
  Receive Date: 20250108
  Receipt Date: 20250108
  Transmission Date: 20250409
  Serious: Yes (Other)
  Sender: GLAND PHARMA LTD
  Company Number: AO-GLANDPHARMA-AO-2024GLNLIT01339

PATIENT
  Age: 51 Year
  Sex: Female
  Weight: 60 kg

DRUGS (1)
  1. ROPIVACAINE HYDROCHLORIDE [Suspect]
     Active Substance: ROPIVACAINE HYDROCHLORIDE
     Indication: Local anaesthesia
     Route: 065

REACTIONS (4)
  - Local anaesthetic systemic toxicity [Recovering/Resolving]
  - Salivary hypersecretion [Recovering/Resolving]
  - Mental status changes [Recovering/Resolving]
  - Dysgeusia [Recovering/Resolving]
